FAERS Safety Report 8989164 (Version 1)
Quarter: 2012Q4

REPORT INFORMATION
  Report Type: Spontaneous
  Country: DE (occurrence: None)
  Receive Date: 20121219
  Receipt Date: 20121219
  Transmission Date: 20130627
  Serious: Yes (Other)
  Sender: FDA-Public Use
  Company Number: GER/GER/12/0027061

PATIENT
  Age: 28 Year
  Sex: Female
  Weight: 51 kg

DRUGS (3)
  1. RISPERIDONE (RISPERIDONE) [Suspect]
     Indication: SCHIZOPHRENIA
     Route: 048
     Dates: start: 2006
  2. RISPERIDONE (RISPERIDONE) [Suspect]
     Indication: PSYCHOSIS
     Route: 048
     Dates: start: 2006
  3. FOLSAEURE (FOLIC ACID) [Concomitant]

REACTIONS (5)
  - Pregnancy [None]
  - Exposure during pregnancy [None]
  - Caesarean section [None]
  - Premature labour [None]
  - Foetal heart rate deceleration [None]
